FAERS Safety Report 9055311 (Version 1)
Quarter: 2013Q1

REPORT INFORMATION
  Report Type: Spontaneous
  Country: BR (occurrence: BR)
  Receive Date: 20130206
  Receipt Date: 20130206
  Transmission Date: 20140127
  Serious: Yes (Other)
  Sender: FDA-Public Use
  Company Number: BR-ASTRAZENECA-2013SE07012

PATIENT
  Age: 18281 Day
  Sex: Female

DRUGS (1)
  1. ATACAND [Suspect]
     Indication: ARRHYTHMIA
     Route: 048
     Dates: start: 20121201, end: 20130127

REACTIONS (4)
  - Hypertension [Recovered/Resolved]
  - Muscle spasms [Unknown]
  - Fatigue [Unknown]
  - Off label use [Recovered/Resolved]
